FAERS Safety Report 7467394-4 (Version None)
Quarter: 2011Q2

REPORT INFORMATION
  Report Type: 
  Country: None (occurrence: None)
  Receive Date: 20110509
  Receipt Date: 20101220
  Transmission Date: 20111010
  Serious: No
  Sender: FDA-Public Use
  Company Number: US-ALEXION-A201001644

PATIENT
  Sex: Female

DRUGS (3)
  1. SOLIRIS [Suspect]
     Indication: PAROXYSMAL NOCTURNAL HAEMOGLOBINURIA
     Dosage: 900 MG, UNK
     Route: 042
     Dates: start: 20060101
  2. ORAL CONTRACEPTIVE NOS [Concomitant]
     Indication: CONTRACEPTION
     Dosage: UNK
  3. FLONASE [Concomitant]
     Indication: HYPERSENSITIVITY
     Dosage: UNK

REACTIONS (9)
  - CHROMATURIA [None]
  - HAEMOGLOBIN DECREASED [None]
  - DIARRHOEA [None]
  - GASTROENTERITIS VIRAL [None]
  - VOMITING [None]
  - NAUSEA [None]
  - BACK PAIN [None]
  - HAEMOLYSIS [None]
  - GASTROOESOPHAGEAL REFLUX DISEASE [None]
